FAERS Safety Report 9205180 (Version 1)
Quarter: 2013Q2

REPORT INFORMATION
  Report Type: Spontaneous
  Country: US (occurrence: None)
  Receive Date: 20130401
  Receipt Date: 20130401
  Transmission Date: 20140414
  Serious: No
  Sender: FDA-Public Use
  Company Number: None

PATIENT
  Age: 33 Year
  Sex: Female
  Weight: 59.88 kg

DRUGS (1)
  1. CREST PRO HEALTH MOUTHWASH 24 HOUR PROTECTION -L-22635395RD [Suspect]
     Dosage: 4 TSP ONCE DENTAL
     Dates: start: 20130327, end: 20130327

REACTIONS (3)
  - Ageusia [None]
  - Glossodynia [None]
  - Dysgeusia [None]
